FAERS Safety Report 8033071-4 (Version None)
Quarter: 2012Q1

REPORT INFORMATION
  Report Type: 
  Country: None (occurrence: None)
  Receive Date: 20120110
  Receipt Date: 20120105
  Transmission Date: 20120608
  Serious: Yes (Hospitalization, Other)
  Sender: FDA-Public Use
  Company Number: CY-PFIZER INC-2012000198

PATIENT
  Age: 47 Year
  Sex: Male

DRUGS (2)
  1. VARENICLINE TARTRATE [Suspect]
     Indication: SMOKING CESSATION THERAPY
     Dosage: ACCORDING TO THE APPROVED DOSAGE SCHEME
     Route: 048
     Dates: start: 20111129, end: 20111226
  2. LIPITOR [Concomitant]
     Indication: HYPERLIPIDAEMIA
     Dosage: UNK

REACTIONS (5)
  - SLEEP TALKING [None]
  - ALTERED STATE OF CONSCIOUSNESS [None]
  - MAJOR DEPRESSION [None]
  - POOR QUALITY SLEEP [None]
  - INSOMNIA [None]
